FAERS Safety Report 11339158 (Version 1)
Quarter: 2015Q3

REPORT INFORMATION
  Report Type: Spontaneous
  Country: US (occurrence: US)
  Receive Date: 20150803
  Receipt Date: 20150803
  Transmission Date: 20151125
  Serious: Yes (Other)
  Sender: FDA-Public Use
  Company Number: US-ELI_LILLY_AND_COMPANY-US200905005821

PATIENT
  Age: 55 Year
  Sex: Male

DRUGS (3)
  1. STRATTERA [Suspect]
     Active Substance: ATOMOXETINE HYDROCHLORIDE
     Indication: POST-TRAUMATIC STRESS DISORDER
     Dosage: UNK, UNKNOWN
     Route: 065
     Dates: start: 200804
  2. STRATTERA [Suspect]
     Active Substance: ATOMOXETINE HYDROCHLORIDE
     Dosage: 60 MG, UNKNOWN
     Route: 065
     Dates: start: 20090522, end: 20090522
  3. STRATTERA [Suspect]
     Active Substance: ATOMOXETINE HYDROCHLORIDE
     Dosage: 40 MG, DAILY (1/D)
     Route: 065
     Dates: start: 20090513

REACTIONS (9)
  - Off label use [Unknown]
  - Anger [Unknown]
  - Erectile dysfunction [Unknown]
  - Hallucination, visual [Unknown]
  - Hypotension [Unknown]
  - Suicidal ideation [Unknown]
  - Feeling abnormal [Unknown]
  - Aggression [Unknown]
  - Therapeutic product ineffective [Unknown]

NARRATIVE: CASE EVENT DATE: 200804
